FAERS Safety Report 20900052 (Version 2)
Quarter: 2022Q3

REPORT INFORMATION
  Report Type: Report from Study
  Country: ZW (occurrence: ZW)
  Receive Date: 20220601
  Receipt Date: 20220715
  Transmission Date: 20221027
  Serious: Yes (Hospitalization, Other)
  Sender: FDA-Public Use
  Company Number: ZW-CIPLA LTD.-2022ZW03577

PATIENT
  Sex: Female

DRUGS (5)
  1. LAMIVUDINE\ZIDOVUDINE [Suspect]
     Active Substance: LAMIVUDINE\ZIDOVUDINE
     Indication: Antiretroviral therapy
     Dosage: 1 DOSAGE FORM, BID (1 IN THE AM AND 1 IN THE PM)
     Route: 065
     Dates: start: 20200818
  2. DARUNAVIR [Suspect]
     Active Substance: DARUNAVIR
     Indication: Antiretroviral therapy
     Dosage: 400 MILLIGRAM, BID (2X400MG IN THE PM)
     Route: 065
     Dates: start: 20200818
  3. RITONAVIR [Suspect]
     Active Substance: RITONAVIR
     Indication: Antiretroviral therapy
     Dosage: 100 MG
     Route: 065
     Dates: start: 20200818
  4. COTRIMOXAZOLE [Concomitant]
     Active Substance: SULFAMETHOXAZOLE\TRIMETHOPRIM
     Indication: Product used for unknown indication
     Dosage: UNK
     Route: 065
  5. CHLORPHENIRAMINE [Concomitant]
     Active Substance: CHLORPHENIRAMINE
     Indication: Product used for unknown indication
     Dosage: UNK
     Route: 065

REACTIONS (2)
  - Thermal burn [Not Recovered/Not Resolved]
  - Burns third degree [Not Recovered/Not Resolved]

NARRATIVE: CASE EVENT DATE: 20220520
